FAERS Safety Report 5070385-4 (Version None)
Quarter: 2006Q3

REPORT INFORMATION
  Report Type: 
  Country: None (occurrence: None)
  Receive Date: 20060731
  Receipt Date: 20060719
  Transmission Date: 20061208
  Serious: Yes (Death)
  Sender: FDA-Public Use
  Company Number: 060724-0000723

PATIENT

DRUGS (5)
  1. COSMOGEN (DACTINOMYCIN FOR INJECTION) [Suspect]
     Indication: EWING'S SARCOMA
     Dosage: IV
     Route: 042
  2. VINCRISTINE SULFATE [Suspect]
     Indication: EWING'S SARCOMA
     Dosage: IV
     Route: 042
  3. IFOSFAMIDE [Suspect]
     Indication: EWING'S SARCOMA
     Dosage: IV
     Route: 042
  4. DOXORUBICIN HCL [Suspect]
     Indication: EWING'S SARCOMA
     Dosage: IV
     Route: 042
  5. ETOPOSIDE [Suspect]
     Indication: EWING'S SARCOMA
     Dosage: IV
     Route: 042

REACTIONS (2)
  - CANDIDA SEPSIS [None]
  - SEPTIC SHOCK [None]
